FAERS Safety Report 7352116-8 (Version None)
Quarter: 2011Q1

REPORT INFORMATION
  Report Type: 
  Country: None (occurrence: None)
  Receive Date: 20110315
  Receipt Date: 20110309
  Transmission Date: 20110831
  Serious: Yes (Hospitalization, Other)
  Sender: FDA-Public Use
  Company Number: US-ELI_LILLY_AND_COMPANY-US201012001427

PATIENT
  Sex: Male
  Weight: 90.703 kg

DRUGS (7)
  1. KLONOPIN [Concomitant]
     Dosage: UNK, 2/D
  2. BYETTA [Suspect]
     Dosage: 10 UG, 2/D
     Route: 058
     Dates: end: 20101201
  3. METFORMIN [Concomitant]
     Indication: TYPE 2 DIABETES MELLITUS
     Dosage: 1000 MG, 2/D
     Route: 048
  4. GEMFIBROZIL [Concomitant]
     Dosage: 600 MG, 2/D
     Route: 048
  5. LANTUS [Concomitant]
     Indication: TYPE 2 DIABETES MELLITUS
     Dosage: UNK, DAILY (1/D)
     Route: 058
  6. SIMVASTATIN [Concomitant]
     Indication: BLOOD TRIGLYCERIDES INCREASED
     Dosage: 80 MG, DAILY (1/D)
     Route: 048
  7. BYETTA [Suspect]
     Indication: TYPE 2 DIABETES MELLITUS
     Dosage: 5 UG, 2/D
     Route: 058
     Dates: start: 20090609

REACTIONS (25)
  - BLOOD GLUCOSE INCREASED [None]
  - FEELING ABNORMAL [None]
  - DIARRHOEA [None]
  - ABDOMINAL DISTENSION [None]
  - MEMORY IMPAIRMENT [None]
  - FLATULENCE [None]
  - GASTRIC DILATATION [None]
  - STRESS [None]
  - WEIGHT DECREASED [None]
  - PANCREATITIS CHRONIC [None]
  - BARRETT'S OESOPHAGUS [None]
  - MUSCLE SPASMS [None]
  - ASTHENIA [None]
  - DYSPEPSIA [None]
  - NAUSEA [None]
  - DIZZINESS [None]
  - CONFUSIONAL STATE [None]
  - LOSS OF CONSCIOUSNESS [None]
  - SOMNOLENCE [None]
  - ABDOMINAL PAIN [None]
  - DECREASED APPETITE [None]
  - OFF LABEL USE [None]
  - HOSPITALISATION [None]
  - GASTROENTERITIS VIRAL [None]
  - GALLBLADDER POLYP [None]
